FAERS Safety Report 9162216 (Version 1)
Quarter: 2013Q1

REPORT INFORMATION
  Report Type: Spontaneous
  Country: US (occurrence: US)
  Receive Date: 20130314
  Receipt Date: 20130314
  Transmission Date: 20140127
  Serious: Yes (Hospitalization)
  Sender: FDA-Public Use
  Company Number: US-BAYER-2013-030602

PATIENT
  Age: 30 Year
  Sex: Female

DRUGS (14)
  1. YAZ [Suspect]
  2. PROZAC [Concomitant]
     Dosage: 80 MG MORNING, 20 MG AT NIGHT
  3. WELLBUTRIN [Concomitant]
     Dosage: 100 MG, DAILY
  4. VALTREX [Concomitant]
     Dosage: 500 MG, DAILY
  5. ALPRAZOLAM [Concomitant]
     Dosage: 0.5 MG, UNK
  6. STRATTERA [Concomitant]
     Dosage: 40 MG, DAILY
  7. LORATAB [Concomitant]
  8. OXYCONTIN [Concomitant]
  9. PERCOCET [OXYCODONE HYDROCHLORIDE,OXYCODONE TEREPHTHALATE,PARACETA [Concomitant]
  10. AMOXICILLIN [Concomitant]
     Dosage: 500 MG, UNK
  11. PHENAZOPYRIDINE [Concomitant]
  12. SULFAMETHOXAZOLE [Concomitant]
  13. BACTRIM BALSAMICO [Concomitant]
  14. CIPRO [Concomitant]

REACTIONS (1)
  - Pulmonary embolism [None]
